FAERS Safety Report 8255738-5 (Version None)
Quarter: 2012Q2

REPORT INFORMATION
  Report Type: 
  Country: None (occurrence: None)
  Receive Date: 20120403
  Receipt Date: 20120329
  Transmission Date: 20120825
  Serious: Yes (Hospitalization)
  Sender: FDA-Public Use
  Company Number: PHHO2012FR005127

PATIENT
  Sex: Male

DRUGS (7)
  1. DEXAMETHASONE [Suspect]
     Indication: ACUTE LYMPHOCYTIC LEUKAEMIA
     Dosage: 18 MG, J
     Route: 042
     Dates: start: 20120130, end: 20120203
  2. IMATINIB MESYLATE [Suspect]
     Indication: ACUTE LYMPHOCYTIC LEUKAEMIA
     Dosage: UNK
     Route: 048
     Dates: start: 20120130, end: 20120209
  3. VINDESINE [Suspect]
     Indication: ACUTE LYMPHOCYTIC LEUKAEMIA
     Dosage: 2.7 MG, J
     Route: 042
     Dates: start: 20120130, end: 20120204
  4. METHOTREXATE [Suspect]
     Indication: ACUTE LYMPHOCYTIC LEUKAEMIA
     Dosage: 4600 MG, UNK
     Route: 042
     Dates: start: 20120130
  5. DAUNORUBICIN HCL [Suspect]
     Indication: ACUTE LYMPHOCYTIC LEUKAEMIA
     Dosage: 27 MG, UNK
     Route: 042
     Dates: start: 20120203, end: 20120203
  6. IFOSFAMIDE [Suspect]
     Indication: ACUTE LYMPHOCYTIC LEUKAEMIA
     Dosage: 3600 MG, UNK
     Route: 042
     Dates: end: 20120202
  7. ELSPAR [Suspect]
     Indication: ACUTE LYMPHOCYTIC LEUKAEMIA
     Dosage: 2400 UI, UNK
     Dates: start: 20120203, end: 20120203

REACTIONS (3)
  - BRONCHOPNEUMOPATHY [None]
  - PANCREATITIS [None]
  - ABDOMINAL PAIN [None]
